FAERS Safety Report 5807959-6 (Version None)
Quarter: 2008Q3

REPORT INFORMATION
  Report Type: 
  Country: None (occurrence: None)
  Receive Date: 20080711
  Receipt Date: 20080630
  Transmission Date: 20090109
  Serious: Yes (Other)
  Sender: FDA-Public Use
  Company Number: JP-PFIZER INC-2008041219

PATIENT
  Sex: Male

DRUGS (2)
  1. GABAPEN [Suspect]
     Indication: FIBROMYALGIA
     Dosage: DAILY DOSE:2400MG
     Route: 048
  2. LYRICA [Suspect]

REACTIONS (4)
  - ABASIA [None]
  - OEDEMA [None]
  - WEIGHT DECREASED [None]
  - WEIGHT INCREASED [None]
